FAERS Safety Report 12237245 (Version 1)
Quarter: 2016Q2

REPORT INFORMATION
  Report Type: Spontaneous
  Country: IT (occurrence: IT)
  Receive Date: 20160405
  Receipt Date: 20160405
  Transmission Date: 20160815
  Serious: Yes (Other)
  Sender: FDA-Public Use
  Company Number: IT-ROCHE-1736680

PATIENT
  Age: 50 Year
  Sex: Female
  Weight: 69 kg

DRUGS (8)
  1. TAPAZOLE [Concomitant]
     Active Substance: METHIMAZOLE
     Indication: HYPERTHYROIDISM
     Dosage: 5 MG - PVC/AL BLISTER PACK CONTAINING 100 TABLETS
     Route: 048
  2. DEXAMETHASONE PHOSPHATE [Concomitant]
     Active Substance: DEXAMETHASONE PHOSPHATE
     Indication: PREMEDICATION
     Dosage: ^8 MG/ 2 ML -SOLUTION FOR INJECTION^ 1 VIAL
     Route: 042
     Dates: start: 20160331, end: 20160331
  3. AVASTIN [Suspect]
     Active Substance: BEVACIZUMAB
     Indication: OVARIAN CANCER
     Route: 065
     Dates: start: 20160311, end: 20160311
  4. RANITIDINE. [Concomitant]
     Active Substance: RANITIDINE
     Indication: PREMEDICATION
     Route: 042
     Dates: start: 20160331, end: 20160331
  5. CARBOPLATIN. [Suspect]
     Active Substance: CARBOPLATIN
     Indication: OVARIAN CANCER
     Dosage: ^50 MG/5 ML- 1 VIAL CONTAINING 5 ML
     Route: 042
     Dates: start: 20160331, end: 20160331
  6. PACLITAXEL. [Suspect]
     Active Substance: PACLITAXEL
     Indication: OVARIAN CANCER
     Dosage: ^6 MG/ML-1 GLASS VIAL CONTAINING 30 MG/5 ML
     Route: 042
     Dates: start: 20160331, end: 20160331
  7. AVASTIN [Suspect]
     Active Substance: BEVACIZUMAB
     Dosage: 1 VIAL CONTAINING 400 MG
     Route: 042
     Dates: start: 20160331, end: 20160331
  8. TRIMETON (ITALY) [Concomitant]
     Indication: PREMEDICATION
     Dosage: ^10 MG/1 ML -5 VIALS CONTAINING 1 ML
     Route: 042
     Dates: start: 20160331, end: 20160331

REACTIONS (4)
  - Abdominal pain upper [Recovering/Resolving]
  - Vomiting [Recovering/Resolving]
  - Malaise [Unknown]
  - Rash [Recovering/Resolving]

NARRATIVE: CASE EVENT DATE: 20160331
